FAERS Safety Report 5890531-X (Version None)
Quarter: 2008Q3

REPORT INFORMATION
  Report Type: 
  Country: None (occurrence: None)
  Receive Date: 20080922
  Receipt Date: 20080918
  Transmission Date: 20090109
  Serious: Yes (Hospitalization)
  Sender: FDA-Public Use
  Company Number: US-CELGENEUS-163-20785-06121230

PATIENT
  Sex: Female

DRUGS (5)
  1. THALOMID [Suspect]
     Indication: BRAIN NEOPLASM MALIGNANT
     Route: 048
     Dates: start: 20061216, end: 20061226
  2. THALOMID [Suspect]
     Route: 048
     Dates: start: 20070126
  3. CELEBREX [Suspect]
     Indication: BLOOD GROWTH HORMONE
     Route: 065
     Dates: end: 20061226
  4. CELEBREX [Suspect]
     Route: 065
     Dates: start: 20070101
  5. ETOPOSIDE [Concomitant]
     Indication: BRAIN NEOPLASM
     Route: 048

REACTIONS (1)
  - STEVENS-JOHNSON SYNDROME [None]
